FAERS Safety Report 17742868 (Version 3)
Quarter: 2020Q2

REPORT INFORMATION
  Report Type: Spontaneous
  Country: KR (occurrence: KR)
  Receive Date: 20200504
  Receipt Date: 20200511
  Transmission Date: 20200714
  Serious: Yes (Other)
  Sender: FDA-Public Use
  Company Number: KR-PFIZER INC-2020175535

PATIENT
  Age: 44 Year
  Sex: Male

DRUGS (6)
  1. IMMUNOGLOBULIN HUMAN NORMAL [Concomitant]
     Active Substance: HUMAN IMMUNOGLOBULIN G
     Dosage: UNK (1 G/KG, MAINTENANCE)
     Route: 042
  2. METHYLPREDNISOLONE ACETATE. [Suspect]
     Active Substance: METHYLPREDNISOLONE ACETATE
     Indication: LICHEN MYXOEDEMATOSUS
     Dosage: 4 TO 8 MG, 1X/DAY (35 MONTHS)
  3. MYCOPHENOLATE MOFETIL. [Concomitant]
     Active Substance: MYCOPHENOLATE MOFETIL
     Indication: LICHEN MYXOEDEMATOSUS
     Dosage: 1000 MG
  4. METHYLPREDNISOLONE ACETATE. [Suspect]
     Active Substance: METHYLPREDNISOLONE ACETATE
     Dosage: UNK (4-6 MG)
  5. METHOTREXATE. [Concomitant]
     Active Substance: METHOTREXATE
     Indication: LICHEN MYXOEDEMATOSUS
     Dosage: UNK
     Route: 048
  6. IMMUNOGLOBULIN HUMAN NORMAL [Concomitant]
     Active Substance: HUMAN IMMUNOGLOBULIN G
     Indication: LICHEN MYXOEDEMATOSUS
     Dosage: MONTHLY (1 G/KG) THREE COURSES
     Route: 042

REACTIONS (5)
  - Peptic ulcer [Unknown]
  - Arthralgia [Unknown]
  - Cataract [Unknown]
  - Osteoporosis [Unknown]
  - Chorioretinopathy [Unknown]
